FAERS Safety Report 15266074 (Version 1)
Quarter: 2018Q3

REPORT INFORMATION
  Report Type: Spontaneous
  Country: US (occurrence: US)
  Receive Date: 20180724
  Receipt Date: 20180724
  Transmission Date: 20181010
  Serious: Yes (Other)
  Sender: FDA-Public Use
  Company Number: None

PATIENT
  Age: 12 Year
  Sex: Female
  Weight: 33.75 kg

DRUGS (1)
  1. DENTA 5000 PLUS [Suspect]
     Active Substance: SODIUM FLUORIDE
     Indication: DENTAL CARIES
     Dosage: ?          QUANTITY:1 APPLICATION;?
     Route: 061
     Dates: start: 20180519, end: 20180526

REACTIONS (1)
  - Alopecia [None]

NARRATIVE: CASE EVENT DATE: 20180526
